FAERS Safety Report 4537197-9 (Version None)
Quarter: 2004Q4

REPORT INFORMATION
  Report Type: 
  Country: None (occurrence: None)
  Receive Date: 20041223
  Receipt Date: 20041213
  Transmission Date: 20050328
  Serious: Yes (Death, Hospitalization)
  Sender: FDA-Public Use
  Company Number: PHRM2004FR03652

PATIENT
  Age: 28 Year
  Sex: Female

DRUGS (6)
  1. METOPIRONE [Suspect]
     Dosage: UNK, UNK
     Route: 048
     Dates: start: 20030220, end: 20030429
  2. MITOTANE [Concomitant]
     Dosage: 24 DF/DAY
     Route: 048
     Dates: start: 20021115, end: 20030218
  3. LYSODREN [Suspect]
     Dosage: 17 DF/DAY
     Route: 048
     Dates: start: 20030301, end: 20030429
  4. LYSODREN [Suspect]
     Dosage: UNK, UNK
     Route: 048
     Dates: start: 20030220, end: 20030429
  5. FLUDROCORTISONE ACETATE TAB [Concomitant]
     Dosage: UNK, UNK
     Dates: start: 20021115, end: 20030218
  6. HYDROCORTISONE [Concomitant]
     Dosage: UNK, UNK
     Dates: start: 20021115, end: 20030218

REACTIONS (8)
  - ANOREXIA [None]
  - LEUKOPENIA [None]
  - NEOPLASM PROGRESSION [None]
  - PAIN [None]
  - PARAESTHESIA [None]
  - THERAPY NON-RESPONDER [None]
  - VOMITING [None]
  - WEIGHT DECREASED [None]
